FAERS Safety Report 22104174 (Version 1)
Quarter: 2023Q1

REPORT INFORMATION
  Report Type: Report from Study
  Country: CA (occurrence: CA)
  Receive Date: 20230316
  Receipt Date: 20230316
  Transmission Date: 20230418
  Serious: Yes (Other)
  Sender: FDA-Public Use
  Company Number: CA-TAKEDA-2022TUS103862

PATIENT
  Age: 61 Year
  Sex: Female

DRUGS (9)
  1. HUMAN IMMUNOGLOBULIN G [Suspect]
     Active Substance: HUMAN IMMUNOGLOBULIN G
     Indication: Secondary immunodeficiency
     Dosage: 9 GRAM, 1/WEEK
     Route: 050
     Dates: start: 20221221
  2. TOPAMAX [Concomitant]
     Active Substance: TOPIRAMATE
     Dosage: 125 MILLIGRAM, QD
     Route: 065
  3. AMLODIPINE [Concomitant]
     Active Substance: AMLODIPINE BESYLATE
     Dosage: 5 MILLIGRAM, QD
     Route: 065
  4. HYDROCHLOROTHIAZIDE [Concomitant]
     Active Substance: HYDROCHLOROTHIAZIDE
     Dosage: 25 MILLIGRAM, QD
     Route: 065
  5. CITALOPRAM [Concomitant]
     Active Substance: CITALOPRAM HYDROBROMIDE
     Dosage: 20 MILLIGRAM, QD
     Route: 065
  6. BILASTINE [Concomitant]
     Active Substance: BILASTINE
     Dosage: 20 MILLIGRAM
     Route: 065
  7. PREDNISONE [Concomitant]
     Active Substance: PREDNISONE
     Route: 065
  8. SYMBICORT [Concomitant]
     Active Substance: BUDESONIDE\FORMOTEROL FUMARATE DIHYDRATE
     Dosage: 200 MILLIGRAM, BID
     Route: 065
  9. OMNARIS [Concomitant]
     Active Substance: CICLESONIDE
     Dosage: UNK UNK, BID
     Route: 065

REACTIONS (3)
  - Ankylosing spondylitis [Unknown]
  - Headache [Unknown]
  - Insurance issue [Unknown]
